FAERS Safety Report 25791417 (Version 3)
Quarter: 2025Q4

REPORT INFORMATION
  Report Type: Report from Study
  Country: US (occurrence: US)
  Receive Date: 20250911
  Receipt Date: 20251004
  Transmission Date: 20260118
  Serious: Yes (Life-Threatening, Hospitalization, Other)
  Sender: UPSHER SMITH LABORATORIES
  Company Number: US-UPSHER-SMITH LABORATORIES, LLC-20250901169

PATIENT
  Sex: Male
  Weight: 7.256 kg

DRUGS (3)
  1. VIGADRONE [Suspect]
     Active Substance: VIGABATRIN
     Indication: Infantile spasms
     Dosage: 600 MG, BID (12 ML)
     Route: 048
     Dates: start: 20250822
  2. VIGADRONE [Suspect]
     Active Substance: VIGABATRIN
     Dosage: 600 MG, BID (12 ML)
     Route: 048
     Dates: start: 20250912
  3. VIGAFYDE [Concomitant]
     Active Substance: VIGABATRIN
     Indication: Product used for unknown indication
     Dosage: UNK
     Route: 065
     Dates: start: 20250822

REACTIONS (8)
  - Cerebral venous thrombosis [Not Recovered/Not Resolved]
  - Cerebral microhaemorrhage [Not Recovered/Not Resolved]
  - Cerebrovascular accident [Unknown]
  - Brain injury [Not Recovered/Not Resolved]
  - Seizure cluster [Recovered/Resolved]
  - Dehydration [Not Recovered/Not Resolved]
  - Cerebral congestion [Unknown]
  - Magnetic resonance imaging abnormal [Not Recovered/Not Resolved]

NARRATIVE: CASE EVENT DATE: 20250101
